FAERS Safety Report 21889399 (Version 2)
Quarter: 2023Q1

REPORT INFORMATION
  Report Type: Spontaneous
  Country: GB (occurrence: GB)
  Receive Date: 20230120
  Receipt Date: 20230123
  Transmission Date: 20230418
  Serious: Yes (Death, Hospitalization, Other)
  Sender: FDA-Public Use
  Company Number: GB-ABBVIE-4277006

PATIENT
  Age: 78 Year
  Sex: Male

DRUGS (5)
  1. VENETOCLAX [Suspect]
     Active Substance: VENETOCLAX
     Indication: Chronic lymphocytic leukaemia
     Route: 048
  2. VENETOCLAX [Suspect]
     Active Substance: VENETOCLAX
     Indication: Chronic lymphocytic leukaemia
     Route: 048
  3. VENETOCLAX [Suspect]
     Active Substance: VENETOCLAX
     Indication: Chronic lymphocytic leukaemia
     Route: 048
  4. VENETOCLAX [Suspect]
     Active Substance: VENETOCLAX
     Indication: Chronic lymphocytic leukaemia
     Route: 048
     Dates: start: 20210603
  5. OBINUTUZUMAB [Suspect]
     Active Substance: OBINUTUZUMAB
     Indication: Chronic lymphocytic leukaemia
     Route: 065

REACTIONS (23)
  - Death [Fatal]
  - Fungal infection [Unknown]
  - Anaemia [Unknown]
  - Neutrophil count abnormal [Unknown]
  - Urinary tract infection [Unknown]
  - COVID-19 [Recovered/Resolved]
  - Chronic obstructive pulmonary disease [Not Recovered/Not Resolved]
  - Neutropenia [Unknown]
  - Asthenia [Unknown]
  - Dementia [Unknown]
  - Urosepsis [Unknown]
  - Pneumonia [Unknown]
  - Thrombocytopenia [Unknown]
  - COVID-19 [Unknown]
  - Pneumonia [Unknown]
  - Weight decreased [Unknown]
  - Confusional state [Unknown]
  - Myocardial ischaemia [Unknown]
  - Memory impairment [Unknown]
  - Blood sodium decreased [Unknown]
  - Type 2 diabetes mellitus [Unknown]
  - Coronary artery bypass [Unknown]
  - Lymphocyte count abnormal [Unknown]

NARRATIVE: CASE EVENT DATE: 20210101
